FAERS Safety Report 6832831-2 (Version None)
Quarter: 2010Q3

REPORT INFORMATION
  Report Type: 
  Country: None (occurrence: None)
  Receive Date: 20100712
  Receipt Date: 20100703
  Transmission Date: 20110219
  Serious: Yes (Hospitalization, Other)
  Sender: FDA-Public Use
  Company Number: US-AMGEN-QUU422500

PATIENT
  Sex: Female

DRUGS (1)
  1. ENBREL [Suspect]
     Indication: RHEUMATOID ARTHRITIS
     Route: 058

REACTIONS (12)
  - ARTHRALGIA [None]
  - BRONCHITIS [None]
  - CHEST PAIN [None]
  - DIABETES MELLITUS INADEQUATE CONTROL [None]
  - FEELING OF BODY TEMPERATURE CHANGE [None]
  - HAEMOPTYSIS [None]
  - INTESTINAL OBSTRUCTION [None]
  - MALAISE [None]
  - PAIN IN EXTREMITY [None]
  - PLEURISY [None]
  - PNEUMONIA [None]
  - RASH [None]
